FAERS Safety Report 16458895 (Version 1)
Quarter: 2019Q2

REPORT INFORMATION
  Report Type: Spontaneous
  Country: US (occurrence: US)
  Receive Date: 20190620
  Receipt Date: 20190620
  Transmission Date: 20190711
  Serious: No
  Sender: FDA-Public Use
  Company Number: US-THERAPEUTICSMD-2019TMD00869

PATIENT
  Age: 69 Year
  Sex: Female
  Weight: 72.56 kg

DRUGS (3)
  1. IMVEXXY [Suspect]
     Active Substance: ESTRADIOL
     Indication: ELDERLY
     Dosage: 1X/DAY BEFORE BED
     Route: 067
     Dates: start: 201807, end: 2018
  2. SYNTHROID [Concomitant]
     Active Substance: LEVOTHYROXINE SODIUM
  3. IMVEXXY [Suspect]
     Active Substance: ESTRADIOL
     Dosage: EVERY 4 DAYS BEFORE BED
     Route: 067
     Dates: start: 2018, end: 20190317

REACTIONS (4)
  - Off label use [Recovered/Resolved]
  - Low density lipoprotein increased [Unknown]
  - Weight increased [Unknown]
  - Increased appetite [Unknown]

NARRATIVE: CASE EVENT DATE: 2018
